FAERS Safety Report 7944151-3 (Version None)
Quarter: 2011Q4

REPORT INFORMATION
  Report Type: 
  Country: None (occurrence: None)
  Receive Date: 20111129
  Receipt Date: 20111116
  Transmission Date: 20120403
  Serious: Yes (Hospitalization, Other)
  Sender: FDA-Public Use
  Company Number: JP-AMGEN-JPNCT2011061618

PATIENT
  Age: 42 Year
  Sex: Female
  Weight: 80 kg

DRUGS (5)
  1. PREDNISOLONE [Concomitant]
     Indication: RHEUMATOID ARTHRITIS
     Dosage: 1 MG, 1X/DAY
     Route: 048
     Dates: start: 20030101
  2. PREDNISOLONE [Concomitant]
     Dosage: UNK
     Dates: start: 20070101
  3. ENBREL [Suspect]
     Indication: RHEUMATOID ARTHRITIS
     Dosage: 25 MG, WEEKLY
     Route: 058
     Dates: start: 20050623, end: 20071101
  4. METHOTREXATE [Concomitant]
     Indication: RHEUMATOID ARTHRITIS
     Dosage: 6 MG, WEEKLY
     Route: 048
     Dates: start: 20030101
  5. METHOTREXATE [Concomitant]
     Dosage: 4 MG, 1X/DAY
     Dates: start: 20070101

REACTIONS (5)
  - SEPTIC SHOCK [None]
  - RENAL FAILURE ACUTE [None]
  - ACUTE RESPIRATORY DISTRESS SYNDROME [None]
  - PNEUMONIA PNEUMOCOCCAL [None]
  - DISSEMINATED INTRAVASCULAR COAGULATION [None]
